FAERS Safety Report 8766267 (Version 2)
Quarter: 2013Q1

REPORT INFORMATION
  Report Type: Spontaneous
  Country: GB (occurrence: GB)
  Receive Date: 20120904
  Receipt Date: 20130124
  Transmission Date: 20140127
  Serious: Yes (Death)
  Sender: FDA-Public Use
  Company Number: GB-ROCHE-1114543

PATIENT
  Sex: Male

DRUGS (5)
  1. LUCENTIS [Suspect]
     Indication: PRODUCT USED FOR UNKNOWN INDICATION
     Route: 050
  2. SIMVASTATIN [Concomitant]
  3. OMEPRAZOLE [Concomitant]
  4. NICORANDIL [Concomitant]
  5. ISMN [Concomitant]

REACTIONS (1)
  - Cardiac arrest [Fatal]
